FAERS Safety Report 10355078 (Version 4)
Quarter: 2014Q3

REPORT INFORMATION
  Report Type: Spontaneous
  Country: FI (occurrence: FI)
  Receive Date: 20140731
  Receipt Date: 20140912
  Transmission Date: 20150326
  Serious: Yes (Other)
  Sender: FDA-Public Use
  Company Number: FI-JNJFOC-20140712041

PATIENT
  Age: 70 Year
  Sex: Male
  Weight: 83 kg

DRUGS (15)
  1. RAMIPRIL. [Concomitant]
     Active Substance: RAMIPRIL
     Route: 065
  2. DORMICUM [Concomitant]
     Active Substance: MIDAZOLAM\MIDAZOLAM HYDROCHLORIDE
     Route: 065
  3. IOMERON [Concomitant]
     Active Substance: IOMEPROL
     Route: 065
  4. SIMVASTATIN. [Concomitant]
     Active Substance: SIMVASTATIN
     Route: 065
  5. ACETYLSALICYLIC ACID [Concomitant]
     Active Substance: ASPIRIN
     Route: 065
  6. TAMSULOSIN HYDROCHLORIDE. [Concomitant]
     Active Substance: TAMSULOSIN HYDROCHLORIDE
     Route: 065
  7. KLEXANE [Concomitant]
     Active Substance: ENOXAPARIN
     Route: 042
  8. ORMOX [Concomitant]
     Route: 065
  9. BISOPROLOL [Concomitant]
     Active Substance: BISOPROLOL
     Route: 065
  10. REOPRO [Suspect]
     Active Substance: ABCIXIMAB
     Indication: THROMBOSIS
     Route: 042
     Dates: start: 20140626
  11. LANTUS [Concomitant]
     Active Substance: INSULIN GLARGINE
     Dosage: LANTUS (GLARGINE INSULIN) 20 IU WITH THE USUAL DAILY DOSE OF 64 IU (IN THE??MORNING OF 9-JUL-2014,
     Route: 065
  12. EFFIENT [Concomitant]
     Active Substance: PRASUGREL HYDROCHLORIDE
     Route: 065
  13. DINIT [Concomitant]
     Active Substance: ISOSORBIDE DINITRATE
     Route: 065
  14. JANUMET [Concomitant]
     Active Substance: METFORMIN HYDROCHLORIDE\SITAGLIPTIN PHOSPHATE
     Dosage: (SITAGLIPTIN/METFORMIN) 50MG/850 MG (ONCE A DAY) WAS PAUSED.
     Route: 065
  15. LIDOCAIN [Concomitant]
     Route: 058

REACTIONS (2)
  - Coronary artery thrombosis [Recovered/Resolved]
  - Inappropriate schedule of drug administration [Recovering/Resolving]

NARRATIVE: CASE EVENT DATE: 20140709
